FAERS Safety Report 19270255 (Version 1)
Quarter: 2021Q2

REPORT INFORMATION
  Report Type: Spontaneous
  Country: US (occurrence: US)
  Receive Date: 20210518
  Receipt Date: 20210518
  Transmission Date: 20210717
  Serious: No
  Sender: FDA-Public Use
  Company Number: None

PATIENT
  Age: 95 Year
  Sex: Male

DRUGS (1)
  1. ESOMPERAZOLE [Suspect]
     Active Substance: ESOMEPRAZOLE SODIUM

REACTIONS (2)
  - Product substitution issue [None]
  - Epistaxis [None]
